FAERS Safety Report 6338456-X (Version None)
Quarter: 2009Q3

REPORT INFORMATION
  Report Type: 
  Country: None (occurrence: None)
  Receive Date: 20090901
  Receipt Date: 20090817
  Transmission Date: 20100115
  Serious: Yes (Other)
  Sender: FDA-Public Use
  Company Number: 2008AL008839

PATIENT

DRUGS (4)
  1. DIGOXIN [Suspect]
     Dosage: PO
     Route: 048
  2. LASIX [Concomitant]
  3. COZAAR [Concomitant]
  4. ALDACTONE [Concomitant]

REACTIONS (3)
  - CONGESTIVE CARDIOMYOPATHY [None]
  - DIZZINESS [None]
  - MULTIPLE INJURIES [None]
